FAERS Safety Report 4599396-X (Version None)
Quarter: 2005Q1

REPORT INFORMATION
  Report Type: 
  Country: None (occurrence: None)
  Receive Date: 20050303
  Receipt Date: 20050303
  Transmission Date: 20050727
  Serious: Yes (Other)
  Sender: FDA-Public Use
  Company Number: None

PATIENT
  Age: 16 Year
  Sex: Female
  Weight: 52.6173 kg

DRUGS (7)
  1. ZOLOFT [Suspect]
     Indication: ANXIETY
     Dates: start: 19890615, end: 20050301
  2. ZOLOFT [Suspect]
     Indication: DEPRESSION
     Dates: start: 19890615, end: 20050301
  3. PAXIL [Concomitant]
  4. CLONOPIN [Concomitant]
  5. DEPAKOTE [Concomitant]
  6. EFFEXOR [Concomitant]
  7. LEXAPRO [Concomitant]

REACTIONS (5)
  - AGGRESSION [None]
  - ANGER [None]
  - ANXIETY [None]
  - FEELING ABNORMAL [None]
  - LEGAL PROBLEM [None]
